FAERS Safety Report 19363525 (Version 1)
Quarter: 2021Q2

REPORT INFORMATION
  Report Type: Spontaneous
  Country: US (occurrence: US)
  Receive Date: 20210602
  Receipt Date: 20210602
  Transmission Date: 20210717
  Serious: Yes (Other)
  Sender: FDA-Public Use
  Company Number: None

PATIENT
  Age: 77 Year
  Sex: Female
  Weight: 48.99 kg

DRUGS (5)
  1. ZYRTEC [Concomitant]
     Active Substance: CETIRIZINE HYDROCHLORIDE
  2. ESTRACE [Concomitant]
     Active Substance: ESTRADIOL
  3. MULTIVITAMIN [Concomitant]
     Active Substance: VITAMINS
  4. LEVOTHYROXINE 50MCG TAB [Suspect]
     Active Substance: LEVOTHYROXINE SODIUM
     Indication: HYPOTHYROIDISM
     Dosage: ?          QUANTITY:1 DF DOSAGE FORM;OTHER FREQUENCY:IN THE MORNING ;?
     Route: 048
     Dates: start: 20210215, end: 20210415
  5. CALCIUM CITRATE WITH D [Concomitant]

REACTIONS (4)
  - Drug ineffective [None]
  - Symptom recurrence [None]
  - Hypothyroidism [None]
  - Product substitution issue [None]

NARRATIVE: CASE EVENT DATE: 20210215
